FAERS Safety Report 24678827 (Version 1)
Quarter: 2024Q4

REPORT INFORMATION
  Report Type: Spontaneous
  Country: IT (occurrence: IT)
  Receive Date: 20241129
  Receipt Date: 20241129
  Transmission Date: 20250115
  Serious: Yes (Other)
  Sender: AUROBINDO
  Company Number: IT-MINISAL02-1011713

PATIENT
  Age: 86 Year
  Sex: Male
  Weight: 92 kg

DRUGS (2)
  1. METOPROLOL [Suspect]
     Active Substance: METOPROLOL
     Indication: Atrial fibrillation
     Dosage: 100 MILLIGRAM, TWO TIMES A DAY (100MG X 2/DAY)
     Route: 048
     Dates: start: 20240823, end: 20241108
  2. LANOXIN [Suspect]
     Active Substance: DIGOXIN
     Indication: Atrial fibrillation
     Dosage: 0.12 MILLIGRAM, ONCE A DAY (0.125MG 1 TABLET/DAY)
     Route: 048
     Dates: start: 20240823, end: 20241107

REACTIONS (1)
  - Bradyarrhythmia [Recovered/Resolved]

NARRATIVE: CASE EVENT DATE: 20241107
